FAERS Safety Report 4423928-5 (Version None)
Quarter: 2004Q3

REPORT INFORMATION
  Report Type: 
  Country: None (occurrence: None)
  Receive Date: 20040805
  Receipt Date: 20040722
  Transmission Date: 20050211
  Serious: Yes (Hospitalization)
  Sender: FDA-Public Use
  Company Number: 2004225226DE

PATIENT
  Age: 75 Year
  Sex: Male
  Weight: 74 kg

DRUGS (7)
  1. BEXTRA [Suspect]
     Indication: PAIN
     Dosage: 20 MG, QD, ORAL
     Route: 048
     Dates: start: 20040301, end: 20040319
  2. ASACARD (ACETYLSALICYLIC ACID) CAPSULE, PROLONGED RELEASE [Suspect]
     Indication: INFARCTION
     Dosage: 100 MG, QD, ORAL
     Route: 048
     Dates: start: 20010101, end: 20040319
  3. DELTA-CORTEF [Suspect]
     Indication: RHEUMATOID ARTHRITIS
     Dosage: 2 MG, TID, ORAL
     Route: 048
     Dates: start: 20000101
  4. NIMODIPINE (NIMODIPINE) [Suspect]
     Indication: TRANSIENT ISCHAEMIC ATTACK
     Dosage: 30 MG, BID, ORAL
     Route: 048
     Dates: start: 20010101, end: 20040319
  5. LISINOPRIL [Concomitant]
  6. MOTENS (LACIDIPINE) [Concomitant]
  7. POLLSTIMOL [Concomitant]

REACTIONS (11)
  - DIZZINESS [None]
  - DRUG INTERACTION [None]
  - DUODENAL ULCER [None]
  - DYSPNOEA EXERTIONAL [None]
  - EPIDIDYMITIS [None]
  - GASTRIC ULCER HAEMORRHAGE [None]
  - GASTRITIS EROSIVE [None]
  - HAEMATEMESIS [None]
  - HELICOBACTER INFECTION [None]
  - MELAENA [None]
  - REFLUX OESOPHAGITIS [None]
